FAERS Safety Report 7176841-7 (Version None)
Quarter: 2010Q4

REPORT INFORMATION
  Report Type: 
  Country: None (occurrence: None)
  Receive Date: 20101220
  Receipt Date: 20101216
  Transmission Date: 20110411
  Serious: Yes (Death, Life-Threatening, Hospitalization)
  Sender: FDA-Public Use
  Company Number: JP-SANOFI-AVENTIS-2010SA067906

PATIENT
  Age: 73 Year
  Sex: Male
  Weight: 44.2 kg

DRUGS (7)
  1. ELPLAT [Suspect]
     Indication: GASTRIC CANCER RECURRENT
     Route: 041
     Dates: start: 20101020, end: 20101020
  2. TS-1 [Suspect]
     Indication: GASTRIC CANCER RECURRENT
     Route: 048
     Dates: start: 20101020, end: 20101025
  3. ASPIRIN [Suspect]
     Indication: THROMBOSIS PROPHYLAXIS
     Route: 048
     Dates: start: 20101020
  4. BROTIZOLAM [Concomitant]
     Indication: ANXIETY DISORDER
     Route: 048
     Dates: start: 20101006
  5. PURSENNID /SCH/ [Concomitant]
     Indication: CONSTIPATION
     Route: 048
     Dates: start: 20101015
  6. THROMBIN LOCAL SOLUTION [Concomitant]
     Dates: start: 20101106
  7. BUMINATE [Concomitant]
     Route: 042
     Dates: start: 20101107, end: 20101107

REACTIONS (1)
  - TUMOUR HAEMORRHAGE [None]
